FAERS Safety Report 10577929 (Version 1)
Quarter: 2014Q4

REPORT INFORMATION
  Report Type: Spontaneous
  Country: US (occurrence: US)
  Receive Date: 20141112
  Receipt Date: 20141112
  Transmission Date: 20150529
  Serious: No
  Sender: FDA-Public Use
  Company Number: US-ASTRAZENECA-2014SE78122

PATIENT
  Age: 40 Year
  Sex: Female
  Weight: 45.4 kg

DRUGS (4)
  1. CALCIUM [Concomitant]
     Active Substance: CALCIUM
     Indication: SUPPLEMENTATION THERAPY
     Route: 048
  2. NEXIUM [Suspect]
     Active Substance: ESOMEPRAZOLE MAGNESIUM
     Indication: GASTROOESOPHAGEAL REFLUX DISEASE
     Route: 048
     Dates: start: 201303
  3. MULTIVITAMIN [Concomitant]
     Active Substance: VITAMINS
     Indication: HYPOVITAMINOSIS
     Route: 048
  4. OMEPRAZOLE. [Suspect]
     Active Substance: OMEPRAZOLE
     Indication: GASTROOESOPHAGEAL REFLUX DISEASE
     Route: 048
     Dates: start: 201303, end: 201303

REACTIONS (12)
  - Transferrin saturation decreased [Unknown]
  - Mean cell haemoglobin decreased [Unknown]
  - Drug ineffective [Recovered/Resolved]
  - Haemoglobin decreased [Recovered/Resolved]
  - Iron binding capacity total increased [Unknown]
  - Fatigue [Not Recovered/Not Resolved]
  - Blood iron decreased [Unknown]
  - Mean cell volume decreased [Unknown]
  - Malaise [Unknown]
  - Abdominal pain [Recovered/Resolved]
  - Haematocrit decreased [Unknown]
  - Intentional product misuse [Unknown]

NARRATIVE: CASE EVENT DATE: 2013
